FAERS Safety Report 13862230 (Version 2)
Quarter: 2017Q3

REPORT INFORMATION
  Report Type: Report from Study
  Country: CO (occurrence: CO)
  Receive Date: 20170813
  Receipt Date: 20170829
  Transmission Date: 20171127
  Serious: Yes (Hospitalization, Other)
  Sender: FDA-Public Use
  Company Number: CO-AMGEN-COLSL2017119341

PATIENT
  Age: 87 Year
  Sex: Male

DRUGS (1)
  1. ARANESP [Suspect]
     Active Substance: DARBEPOETIN ALFA
     Indication: NEPHROGENIC ANAEMIA
     Dosage: 80 MUG, Q2WK
     Route: 058
     Dates: start: 20170516

REACTIONS (5)
  - Dizziness [Unknown]
  - Pleural effusion [Not Recovered/Not Resolved]
  - Injection site reaction [Recovered/Resolved]
  - Fall [Unknown]
  - Haemoglobin abnormal [Unknown]

NARRATIVE: CASE EVENT DATE: 2017
